FAERS Safety Report 22617394 (Version 1)
Quarter: 2023Q2

REPORT INFORMATION
  Report Type: Spontaneous
  Country: FR (occurrence: FR)
  Receive Date: 20230620
  Receipt Date: 20230620
  Transmission Date: 20230721
  Serious: Yes (Other)
  Sender: FDA-Public Use
  Company Number: FR-AFSSAPS-TO2023001073

PATIENT
  Age: 44 Year
  Sex: Female

DRUGS (2)
  1. ACETAMINOPHEN [Suspect]
     Active Substance: ACETAMINOPHEN
     Indication: Pain
     Dosage: UNK
     Route: 048
     Dates: start: 20230513, end: 20230517
  2. ACUPAN [Suspect]
     Active Substance: NEFOPAM HYDROCHLORIDE
     Indication: Pain
     Dosage: UNK (NR)
     Route: 042
     Dates: start: 20230513, end: 20230519

REACTIONS (2)
  - Hepatic cytolysis [Recovered/Resolved]
  - Infusion site inflammation [Recovered/Resolved]

NARRATIVE: CASE EVENT DATE: 20230516
